FAERS Safety Report 14635802 (Version 1)
Quarter: 2018Q1

REPORT INFORMATION
  Report Type: Spontaneous
  Country: US (occurrence: US)
  Receive Date: 20180314
  Receipt Date: 20180314
  Transmission Date: 20180509
  Serious: Yes (Other)
  Sender: FDA-Public Use
  Company Number: US-INFO-000595

PATIENT
  Age: 72 Year
  Sex: Female
  Weight: 42.18 kg

DRUGS (2)
  1. PREDNISONE. [Concomitant]
     Active Substance: PREDNISONE
     Route: 048
  2. ZOLEDRONIC ACID INJECTION [Suspect]
     Active Substance: ZOLEDRONIC ACID
     Indication: OSTEOPOROSIS
     Route: 042
     Dates: start: 20170908, end: 20170908

REACTIONS (2)
  - Osteonecrosis of jaw [Recovering/Resolving]
  - Disease recurrence [Recovering/Resolving]
